FAERS Safety Report 5224768-X (Version None)
Quarter: 2007Q1

REPORT INFORMATION
  Report Type: 
  Country: None (occurrence: None)
  Receive Date: 20070129
  Receipt Date: 20070129
  Transmission Date: 20070707
  Serious: No
  Sender: FDA-Public Use
  Company Number: None

PATIENT
  Sex: Male
  Weight: 86.1834 kg

DRUGS (1)
  1. NIFEDIPINE [Suspect]
     Dosage: ONCE A DAY

REACTIONS (2)
  - MACULOPATHY [None]
  - SKIN IRRITATION [None]
